FAERS Safety Report 7960288-7 (Version None)
Quarter: 2011Q4

REPORT INFORMATION
  Report Type: 
  Country: None (occurrence: None)
  Receive Date: 20111201
  Receipt Date: 20111121
  Transmission Date: 20120403
  Serious: Yes (Life-Threatening, Hospitalization, Disabling, Other)
  Sender: FDA-Public Use
  Company Number: 2011MA003789

PATIENT
  Sex: Female
  Weight: 92.5338 kg

DRUGS (121)
  1. ARANESP [Concomitant]
  2. COUMADIN [Concomitant]
  3. IBERET [Concomitant]
  4. CIMETIDINE [Concomitant]
  5. GAVISCON [Concomitant]
  6. PREVACID [Concomitant]
  7. SEPTRA [Concomitant]
  8. TRIMETHOPRIM [Concomitant]
  9. ATROPINE [Concomitant]
  10. ATROVENT [Concomitant]
  11. COZAAR [Concomitant]
  12. GI COCKTAIL [Concomitant]
  13. HYDROCODONE [Concomitant]
  14. MEPERGAN [Concomitant]
  15. PAXIL [Concomitant]
  16. PROZAC [Concomitant]
  17. XALATAN [Concomitant]
  18. BLUE SKIN OINTMENT [Concomitant]
  19. HEPARIN [Concomitant]
  20. HYDROCODONE [Concomitant]
  21. MEGACE [Concomitant]
  22. BETHANECHOL [Concomitant]
  23. PHENERGAN [Concomitant]
  24. PROCRIT [Concomitant]
  25. BUSPAR [Concomitant]
  26. NITROGLYCERIN [Concomitant]
  27. PROMETHAZINE [Concomitant]
  28. STADOL [Concomitant]
  29. VIROPTIC [Concomitant]
  30. ASPIRIN [Concomitant]
  31. DEMEROL [Concomitant]
  32. IBUPROFEN [Concomitant]
  33. ISORDIL [Concomitant]
  34. MIRALAX [Concomitant]
  35. POLYETHYLENE GLYCOL [Concomitant]
  36. PROPULSID [Concomitant]
  37. ZOFRAN [Concomitant]
  38. ZOLOFT [Concomitant]
  39. AXID [Concomitant]
  40. DICYCLOMINE [Concomitant]
  41. GABAPENTIN [Concomitant]
  42. HYDRALAZINE HCL [Concomitant]
  43. PROTONIX [Concomitant]
  44. SENOKOT [Concomitant]
  45. ZOLPIDEM [Concomitant]
  46. ZOVIRAX [Concomitant]
  47. BACTRIM [Concomitant]
  48. ASPIRIN [Concomitant]
  49. KEFLEX [Concomitant]
  50. PHENAZOPYRIDINE HCL TAB [Concomitant]
  51. TENORMIN [Concomitant]
  52. TRIAMCINOLONE [Concomitant]
  53. XANAX [Concomitant]
  54. ZEMPLAR [Concomitant]
  55. DOCUSATE [Concomitant]
  56. FLUCONAZOLE [Concomitant]
  57. LEVAQUIN [Concomitant]
  58. LOPRESSOR [Concomitant]
  59. LASIX [Concomitant]
  60. ROCEPHAN [Concomitant]
  61. SULFAMETHOXAZOLE [Concomitant]
  62. BENTYL [Concomitant]
  63. CAPOTEN [Concomitant]
  64. LORTAB [Concomitant]
  65. MAXZIDE [Concomitant]
  66. NAPROSYN [Concomitant]
  67. NORFLEX [Concomitant]
  68. FERROUS SULFATE TAB [Concomitant]
  69. HYDROCODONE BITARTRATE AND ACETAMINOPHEN [Concomitant]
  70. LUMIGAN [Concomitant]
  71. VERAPAMIL [Concomitant]
  72. ALBUTEROL [Concomitant]
  73. DARVOCET-N 50 [Concomitant]
  74. ENEMA [Concomitant]
  75. METOPROLOL TARTRATE [Concomitant]
  76. NEXIUM [Concomitant]
  77. NITROFURANTOIN [Concomitant]
  78. WELLBUTRIN [Concomitant]
  79. CODEINE SULFATE [Concomitant]
  80. LACTULOSE [Concomitant]
  81. IRON [Suspect]
  82. PEPCID [Concomitant]
  83. TRAMADOL HCL [Concomitant]
  84. ULTRAM [Concomitant]
  85. METOCLOPRAMIDE [Suspect]
     Indication: GASTROOESOPHAGEAL REFLUX DISEASE
     Dosage: 10 MG;QID;PO
     Route: 048
     Dates: start: 19900122, end: 20100401
  86. METOCLOPRAMIDE [Suspect]
     Indication: GASTRITIS
     Dosage: 10 MG;QID;PO
     Route: 048
     Dates: start: 19900122, end: 20100401
  87. METOCLOPRAMIDE [Suspect]
     Indication: VOMITING
     Dosage: 10 MG;QID;PO
     Route: 048
     Dates: start: 19900122, end: 20100401
  88. METOCLOPRAMIDE [Suspect]
     Indication: ABDOMINAL PAIN
     Dosage: 10 MG;QID;PO
     Route: 048
     Dates: start: 19900122, end: 20100401
  89. METOCLOPRAMIDE [Suspect]
     Indication: NAUSEA
     Dosage: 10 MG;QID;PO
     Route: 048
     Dates: start: 19900122, end: 20100401
  90. METOCLOPRAMIDE [Suspect]
     Indication: IMPAIRED GASTRIC EMPTYING
     Dosage: 10 MG;QID;PO
     Route: 048
     Dates: start: 19900122, end: 20100401
  91. VITAMIN B COMPLEX CAP [Concomitant]
  92. FLONASE [Concomitant]
  93. LEVOFLOXACIN [Concomitant]
  94. LORATADINE [Concomitant]
  95. LYRICA [Concomitant]
  96. MILK OF MAGNESIA TAB [Concomitant]
  97. PRILOSEC [Concomitant]
  98. TAGAMET [Concomitant]
  99. CEPHALEXIN [Concomitant]
  100. DIFLUCAN [Concomitant]
  101. GLYCOLAX [Concomitant]
  102. NOVOLIN 70/30 [Concomitant]
  103. HUMULIN R [Concomitant]
  104. LOTEMAX [Concomitant]
  105. LISINOPRIL [Concomitant]
  106. POTASSIUM ACETATE [Concomitant]
  107. KLONOPIN [Concomitant]
  108. MACRODANTIN [Concomitant]
  109. SINEMET [Concomitant]
  110. TOBRADEX [Concomitant]
  111. TRAZODONE HCL [Concomitant]
  112. TYLOX [Concomitant]
  113. VISTARIL [Concomitant]
  114. CIPROFLOXACIN [Concomitant]
  115. DULCOLAX [Concomitant]
  116. HYDROXYZINE [Concomitant]
  117. MAGNESIUM CITRATE [Concomitant]
  118. ERYTHROMYCIN [Concomitant]
  119. PERIDINE/PROMETHAZINE CAPETH [Concomitant]
  120. ORPHENADRINE CITRATE [Concomitant]
  121. PHENAZOPYRIDINE HCL TAB [Concomitant]

REACTIONS (125)
  - INJURY [None]
  - TREATMENT NONCOMPLIANCE [None]
  - RETINAL HAEMORRHAGE [None]
  - CONSTIPATION [None]
  - CONFUSIONAL STATE [None]
  - AZOTAEMIA [None]
  - MYALGIA [None]
  - DERMATITIS ATOPIC [None]
  - CATARACT [None]
  - CHRONIC SINUSITIS [None]
  - PYELONEPHRITIS [None]
  - MYOCARDIAL INFARCTION [None]
  - INGUINAL HERNIA [None]
  - BACK PAIN [None]
  - HYPERTENSION [None]
  - URINARY TRACT INFECTION [None]
  - COUGH [None]
  - NEUROMYOPATHY [None]
  - PRURITUS [None]
  - PRESBYOPIA [None]
  - UNEVALUABLE EVENT [None]
  - FORMICATION [None]
  - DYSPHAGIA [None]
  - GASTROINTESTINAL PAIN [None]
  - ERYTHEMA [None]
  - TARDIVE DYSKINESIA [None]
  - EMOTIONAL DISORDER [None]
  - RENAL FAILURE ACUTE [None]
  - WEIGHT INCREASED [None]
  - SWELLING [None]
  - RETINAL DETACHMENT [None]
  - VITREOUS FLOATERS [None]
  - OVARIAN DISORDER [None]
  - CELLULITIS [None]
  - POLYCYTHAEMIA [None]
  - VISION BLURRED [None]
  - CORONARY ARTERY THROMBOSIS [None]
  - PULMONARY EMBOLISM [None]
  - CYSTITIS GLANDULARIS [None]
  - CORONARY ARTERY DISEASE [None]
  - GASTRITIS EROSIVE [None]
  - GASTRIC MUCOSAL HYPERTROPHY [None]
  - NASAL SEPTUM DEVIATION [None]
  - EXTRAPYRAMIDAL DISORDER [None]
  - CHOREA [None]
  - ECONOMIC PROBLEM [None]
  - FRUSTRATION [None]
  - EAR PAIN [None]
  - ANXIETY [None]
  - ABDOMINAL PAIN [None]
  - CONJUNCTIVITIS [None]
  - MIDDLE EAR DISORDER [None]
  - HEADACHE [None]
  - TREMOR [None]
  - DEHYDRATION [None]
  - HYPOGLYCAEMIA [None]
  - ANTIPHOSPHOLIPID SYNDROME [None]
  - DIABETIC KETOACIDOSIS [None]
  - EARLY SATIETY [None]
  - LIVER FUNCTION TEST ABNORMAL [None]
  - STRESS [None]
  - ARTERIOSPASM CORONARY [None]
  - WEIGHT DECREASED [None]
  - NEPHRITIC SYNDROME [None]
  - DYSPEPSIA [None]
  - BLOOD GLUCOSE DECREASED [None]
  - BRONCHOSPASM [None]
  - DYSPNOEA [None]
  - HYPERSENSITIVITY [None]
  - HYPERMETROPIA [None]
  - ASTIGMATISM [None]
  - BURSITIS [None]
  - IRRITABLE BOWEL SYNDROME [None]
  - RENAL FAILURE CHRONIC [None]
  - DIABETIC RETINOPATHY [None]
  - ARTHRALGIA [None]
  - HAEMATURIA [None]
  - DECREASED APPETITE [None]
  - PRODUCTIVE COUGH [None]
  - HAEMATEMESIS [None]
  - DEAFNESS [None]
  - MUSCLE CONTRACTIONS INVOLUNTARY [None]
  - FLANK PAIN [None]
  - DRUG HYPERSENSITIVITY [None]
  - CARDIAC FAILURE CONGESTIVE [None]
  - GASTROENTERITIS [None]
  - DEPRESSION [None]
  - RETINAL ISCHAEMIA [None]
  - HIATUS HERNIA [None]
  - DIASTOLIC DYSFUNCTION [None]
  - SENSATION OF HEAVINESS [None]
  - OEDEMA PERIPHERAL [None]
  - TEMPOROMANDIBULAR JOINT SYNDROME [None]
  - PROTEINURIA [None]
  - FIBROMYALGIA [None]
  - NEURALGIA [None]
  - RASH [None]
  - NAUSEA [None]
  - CHEST DISCOMFORT [None]
  - MUSCULOSKELETAL CHEST PAIN [None]
  - EUSTACHIAN TUBE DYSFUNCTION [None]
  - DEEP VEIN THROMBOSIS [None]
  - FATIGUE [None]
  - HYPERGLYCAEMIA [None]
  - PAIN IN EXTREMITY [None]
  - FLUID RETENTION [None]
  - COLONIC POLYP [None]
  - HERPES ZOSTER [None]
  - VISUAL ACUITY REDUCED [None]
  - CONDITION AGGRAVATED [None]
  - PARAESTHESIA [None]
  - DIABETIC NEPHROPATHY [None]
  - GASTROOESOPHAGEAL REFLUX DISEASE [None]
  - DIABETES MELLITUS INADEQUATE CONTROL [None]
  - VOMITING [None]
  - ASTHMA [None]
  - HYPOAESTHESIA [None]
  - BURNING SENSATION [None]
  - EYELID PTOSIS [None]
  - MIDDLE EAR EFFUSION [None]
  - BREATH ODOUR [None]
  - CERUMEN IMPACTION [None]
  - OESOPHAGEAL PAIN [None]
  - MUSCULOSKELETAL PAIN [None]
  - PERIARTHRITIS [None]
